FAERS Safety Report 7822852-5 (Version None)
Quarter: 2011Q4

REPORT INFORMATION
  Report Type: 
  Country: None (occurrence: None)
  Receive Date: 20111018
  Receipt Date: 20110110
  Transmission Date: 20120403
  Serious: No
  Sender: FDA-Public Use
  Company Number: US-ASTRAZENECA-2011SE01514

PATIENT
  Sex: Male
  Weight: 77.1 kg

DRUGS (1)
  1. SYMBICORT [Suspect]
     Dosage: 160/4.5 UG  2 PUFFS BID
     Route: 055

REACTIONS (2)
  - APHONIA [None]
  - DYSPHONIA [None]
